FAERS Safety Report 6898872-4 (Version None)
Quarter: 2010Q3

REPORT INFORMATION
  Report Type: 
  Country: None (occurrence: None)
  Receive Date: 20100802
  Receipt Date: 20071212
  Transmission Date: 20110219
  Serious: Yes (Other)
  Sender: FDA-Public Use
  Company Number: US-PFIZER INC-2007104974

PATIENT
  Sex: Male
  Weight: 83.9 kg

DRUGS (2)
  1. LYRICA [Suspect]
     Indication: BURNING SENSATION
     Dates: start: 20071211
  2. HYDROCODONE BITARTRATE [Concomitant]
     Dates: end: 20071201

REACTIONS (14)
  - ABNORMAL DREAMS [None]
  - ANXIETY [None]
  - BACK PAIN [None]
  - DISORIENTATION [None]
  - FEELING ABNORMAL [None]
  - FEELING COLD [None]
  - FEELING JITTERY [None]
  - HEADACHE [None]
  - LIBIDO INCREASED [None]
  - MUSCLE SPASMS [None]
  - OEDEMA PERIPHERAL [None]
  - PARANOIA [None]
  - SLEEP DISORDER [None]
  - TREMOR [None]
